FAERS Safety Report 7347839-0 (Version None)
Quarter: 2011Q1

REPORT INFORMATION
  Report Type: 
  Country: None (occurrence: None)
  Receive Date: 20110311
  Receipt Date: 20110302
  Transmission Date: 20110831
  Serious: Yes (Hospitalization, Disabling, Other)
  Sender: FDA-Public Use
  Company Number: US-MERCK-0705USA02864

PATIENT
  Age: 37 Year
  Sex: Female
  Weight: 73 kg

DRUGS (11)
  1. [THERAPY UNSPECIFIED] [Concomitant]
     Route: 065
  2. FOSAMAX [Suspect]
     Route: 048
     Dates: start: 20001001
  3. FOSAMAX [Suspect]
     Indication: BONE DISORDER
     Route: 048
     Dates: start: 20001017, end: 20020101
  4. ELAVIL [Concomitant]
     Route: 048
  5. LIDOCAINE [Concomitant]
     Route: 065
  6. OXYCONTIN [Concomitant]
     Route: 065
     Dates: end: 20001201
  7. FOSAMAX [Suspect]
     Indication: JAW FRACTURE
     Route: 048
     Dates: start: 20001017, end: 20020101
  8. FOSAMAX [Suspect]
     Route: 048
     Dates: start: 20001001
  9. LASIX [Concomitant]
     Route: 065
  10. FOSAMAX [Suspect]
     Route: 048
     Dates: start: 20020501
  11. FOSAMAX [Suspect]
     Route: 048
     Dates: start: 20020501

REACTIONS (114)
  - COLITIS [None]
  - PYREXIA [None]
  - HAEMATOCHEZIA [None]
  - IRRITABLE BOWEL SYNDROME [None]
  - MENTAL DISORDER [None]
  - ABSCESS LIMB [None]
  - PANIC ATTACK [None]
  - OEDEMA PERIPHERAL [None]
  - UTERINE PAIN [None]
  - RASH [None]
  - MUSCULOSKELETAL STIFFNESS [None]
  - TRISMUS [None]
  - CELLULITIS [None]
  - FALL [None]
  - EAR PAIN [None]
  - LYMPHADENOPATHY [None]
  - OSTEONECROSIS OF JAW [None]
  - APPENDIX DISORDER [None]
  - CONVULSION [None]
  - DEAFNESS UNILATERAL [None]
  - HAEMATURIA [None]
  - GASTRITIS [None]
  - MUNCHAUSEN'S SYNDROME [None]
  - SKIN DISORDER [None]
  - BONE DENSITY DECREASED [None]
  - IMPRISONMENT [None]
  - TOOTH LOSS [None]
  - STAB WOUND [None]
  - WOUND [None]
  - PREMATURE MENOPAUSE [None]
  - ROAD TRAFFIC ACCIDENT [None]
  - MALLORY-WEISS SYNDROME [None]
  - FACIAL BONES FRACTURE [None]
  - BODY TINEA [None]
  - DIARRHOEA [None]
  - OVARIAN CANCER [None]
  - OSTEOMYELITIS [None]
  - ABDOMINAL PAIN [None]
  - PHYSICAL ABUSE [None]
  - CALCULUS URINARY [None]
  - OROPHARYNGEAL PAIN [None]
  - SNAKE BITE [None]
  - CHILLS [None]
  - MALAISE [None]
  - INFLAMMATORY BOWEL DISEASE [None]
  - INFECTION [None]
  - DECREASED APPETITE [None]
  - PAIN [None]
  - DIVERTICULITIS [None]
  - ANXIETY [None]
  - ADVERSE DRUG REACTION [None]
  - ANORECTAL DISORDER [None]
  - FLANK PAIN [None]
  - ARTHROPATHY [None]
  - OVERDOSE [None]
  - ARTHRALGIA [None]
  - INAPPROPRIATE SCHEDULE OF DRUG ADMINISTRATION [None]
  - PLANTAR FASCIITIS [None]
  - OESOPHAGEAL RUPTURE [None]
  - SWELLING FACE [None]
  - SINUS TACHYCARDIA [None]
  - LACERATION [None]
  - IRON DEFICIENCY ANAEMIA [None]
  - COLONIC POLYP [None]
  - CHRONIC SINUSITIS [None]
  - HEADACHE [None]
  - EPISTAXIS [None]
  - ADVERSE EVENT [None]
  - BALANCE DISORDER [None]
  - HAEMORRHOIDS [None]
  - DEPRESSION [None]
  - MIGRAINE [None]
  - POST-TRAUMATIC STRESS DISORDER [None]
  - RASH PRURITIC [None]
  - FATIGUE [None]
  - DUODENITIS [None]
  - JOINT SPRAIN [None]
  - GASTROINTESTINAL DISORDER [None]
  - VOMITING [None]
  - NEPHROLITHIASIS [None]
  - NAUSEA [None]
  - MUSCLE DISORDER [None]
  - RETINAL DETACHMENT [None]
  - HERNIA [None]
  - PAIN IN JAW [None]
  - TRIGEMINAL NEURALGIA [None]
  - SYNCOPE [None]
  - SKIN LESION [None]
  - FLUID RETENTION [None]
  - DEPENDENCE [None]
  - INTENTIONAL SELF-INJURY [None]
  - HAEMATEMESIS [None]
  - INTENTIONAL OVERDOSE [None]
  - SUICIDAL IDEATION [None]
  - EAR HAEMORRHAGE [None]
  - IMPAIRED HEALING [None]
  - HYPERTENSION [None]
  - HYPERGLYCAEMIA [None]
  - DENTAL CARIES [None]
  - WEIGHT INCREASED [None]
  - MUSCULAR WEAKNESS [None]
  - JOINT DISLOCATION [None]
  - ANIMAL BITE [None]
  - GASTRODUODENITIS [None]
  - UTERINE DISORDER [None]
  - HYPERLIPIDAEMIA [None]
  - PALLOR [None]
  - MELANOCYTIC NAEVUS [None]
  - SLEEP DISORDER [None]
  - MYALGIA [None]
  - URINARY RETENTION [None]
  - CONFUSIONAL STATE [None]
  - CONCUSSION [None]
  - DRUG INEFFECTIVE [None]
